FAERS Safety Report 5486664-2 (Version None)
Quarter: 2007Q3

REPORT INFORMATION
  Report Type: 
  Country: None (occurrence: None)
  Receive Date: 20070925
  Receipt Date: 20070626
  Transmission Date: 20080115
  Serious: No
  Sender: FDA-Public Use
  Company Number: 2007US001110

PATIENT
  Age: 80 Year
  Sex: Female

DRUGS (7)
  1. VESICARE [Suspect]
     Indication: BLADDER DISORDER
     Dosage: 5 MG, UID/QD, ORAL
     Route: 048
     Dates: start: 20070321, end: 20070425
  2. MIRALAX [Concomitant]
  3. NADOLOL [Concomitant]
  4. DYAZIDE [Concomitant]
  5. EVISTA [Concomitant]
  6. KLOR-CON [Concomitant]
  7. AEROBID [Concomitant]

REACTIONS (2)
  - OEDEMA PERIPHERAL [None]
  - SWELLING FACE [None]
